FAERS Safety Report 17784023 (Version 2)
Quarter: 2020Q2

REPORT INFORMATION
  Report Type: Spontaneous
  Country: US (occurrence: US)
  Receive Date: 20200513
  Receipt Date: 20200520
  Transmission Date: 20200714
  Serious: Yes (Other)
  Sender: FDA-Public Use
  Company Number: US-BAUSCH-BL-2020-013520

PATIENT
  Age: 75 Year
  Sex: Female
  Weight: 71.73 kg

DRUGS (3)
  1. SOOTHE PRESERVATIVE FREE LUBRICANT EYE DROPS [Concomitant]
     Indication: DRY EYE
     Dosage: ONE DROP IN EACH EYE TWICE DAILY.
     Route: 047
     Dates: start: 2013, end: 20200503
  2. DEXILANT [Concomitant]
     Active Substance: DEXLANSOPRAZOLE
     Indication: PRODUCT USED FOR UNKNOWN INDICATION
     Route: 048
  3. SOOTHE XP [Suspect]
     Active Substance: LIGHT MINERAL OIL\MINERAL OIL
     Indication: DRY EYE
     Dosage: ONE DROP IN EACH EYE TWICE DAILY.
     Route: 047
     Dates: start: 20200430, end: 20200503

REACTIONS (5)
  - Eye haemorrhage [Recovered/Resolved]
  - Vision blurred [Recovered/Resolved]
  - Eye irritation [Recovered/Resolved]
  - Swollen tear duct [Recovered/Resolved]
  - Foreign body sensation in eyes [Recovered/Resolved]

NARRATIVE: CASE EVENT DATE: 202005
